FAERS Safety Report 23145779 (Version 2)
Quarter: 2024Q1

REPORT INFORMATION
  Report Type: Spontaneous
  Country: ES (occurrence: ES)
  Receive Date: 20231103
  Receipt Date: 20240221
  Transmission Date: 20240410
  Serious: Yes (Death, Other)
  Sender: FDA-Public Use
  Company Number: ES-SA-SAC20230922000532

PATIENT
  Age: 3 Month
  Sex: Female

DRUGS (2)
  1. CEREZYME [Suspect]
     Active Substance: IMIGLUCERASE
     Indication: Gaucher^s disease type III
     Dosage: 60 IU/KG, QW
     Route: 040
     Dates: start: 20230428, end: 20230901
  2. DEXAMETHASONE [Suspect]
     Active Substance: DEXAMETHASONE
     Indication: Product used for unknown indication
     Dosage: UNK
     Route: 065
     Dates: start: 2023, end: 2023

REACTIONS (10)
  - Respiratory failure [Fatal]
  - Neonatal respiratory distress syndrome [Fatal]
  - Infantile apnoea [Fatal]
  - Cyanosis [Fatal]
  - Increased bronchial secretion [Fatal]
  - Cholestasis [Recovered/Resolved]
  - Hypertension [Recovered/Resolved]
  - Nervous system disorder [Unknown]
  - Malnutrition [Unknown]
  - Dysphagia [Unknown]

NARRATIVE: CASE EVENT DATE: 20230101
